FAERS Safety Report 7496415-8 (Version None)
Quarter: 2011Q2

REPORT INFORMATION
  Report Type: 
  Country: None (occurrence: None)
  Receive Date: 20110523
  Receipt Date: 20110513
  Transmission Date: 20111010
  Serious: Yes (Other)
  Sender: FDA-Public Use
  Company Number: PHHY2010TR88206

PATIENT
  Age: 5 Year
  Sex: Male

DRUGS (2)
  1. FLUMAZENIL [Concomitant]
     Dosage: 0.2 MG/DOSE, 3 TIMES PER DAY
     Route: 040
  2. VALPROIC ACID [Suspect]
     Indication: FEBRILE CONVULSION
     Dosage: 60 MG/KG/DAY FOR 3 YEARS

REACTIONS (25)
  - LETHARGY [None]
  - DECREASED APPETITE [None]
  - FEELING ABNORMAL [None]
  - WHITE BLOOD CELL COUNT INCREASED [None]
  - HEPATIC ENCEPHALOPATHY [None]
  - PIGMENTATION DISORDER [None]
  - OCULAR ICTERUS [None]
  - FOETOR HEPATICUS [None]
  - PYREXIA [None]
  - ASTERIXIS [None]
  - MALAISE [None]
  - ABDOMINAL PAIN UPPER [None]
  - HEPATOMEGALY [None]
  - HEART RATE INCREASED [None]
  - HEPATITIS FULMINANT [None]
  - JAUNDICE [None]
  - COMA SCALE ABNORMAL [None]
  - CHRONIC HEPATIC FAILURE [None]
  - IRRITABILITY [None]
  - UNRESPONSIVE TO STIMULI [None]
  - VOMITING [None]
  - LOSS OF CONSCIOUSNESS [None]
  - FATIGUE [None]
  - SOMNOLENCE [None]
  - EXTENSOR PLANTAR RESPONSE [None]
